FAERS Safety Report 8182741-6 (Version None)
Quarter: 2012Q1

REPORT INFORMATION
  Report Type: 
  Country: None (occurrence: None)
  Receive Date: 20120301
  Receipt Date: 20120301
  Transmission Date: 20120608
  Serious: Yes (Hospitalization, Disabling)
  Sender: FDA-Public Use
  Company Number: None

PATIENT
  Age: 68 Year
  Sex: Female
  Weight: 82.1011 kg

DRUGS (2)
  1. FOSAMAX [Suspect]
     Dosage: 70MG WEEKLY
     Dates: start: 20001011
  2. BONIVA [Suspect]
     Dosage: 150MG MONTHLY
     Dates: start: 20060116

REACTIONS (1)
  - LOWER LIMB FRACTURE [None]
